FAERS Safety Report 5442639-0 (Version None)
Quarter: 2007Q3

REPORT INFORMATION
  Report Type: 
  Country: None (occurrence: None)
  Receive Date: 20070731
  Receipt Date: 20070614
  Transmission Date: 20080115
  Serious: No
  Sender: FDA-Public Use
  Company Number: US200706003538

PATIENT
  Age: 60 Year
  Sex: Female

DRUGS (6)
  1. BYETTA [Suspect]
     Indication: TYPE 2 DIABETES MELLITUS
     Dosage: 5 UG, 2/D, SUBCUTANEOUS
     Route: 058
     Dates: start: 20070519
  2. BENICAR [Concomitant]
  3. LORATADINE [Concomitant]
  4. DICLOFENAC (DICLOFENAC) [Concomitant]
  5. PRAVASTATIN [Concomitant]
  6. AVANDIA [Concomitant]

REACTIONS (5)
  - FATIGUE [None]
  - INJECTION SITE BRUISING [None]
  - INJECTION SITE HAEMORRHAGE [None]
  - MYALGIA [None]
  - NAUSEA [None]
